FAERS Safety Report 5549325-7 (Version None)
Quarter: 2007Q4

REPORT INFORMATION
  Report Type: 
  Country: None (occurrence: None)
  Receive Date: 20071212
  Receipt Date: 20071204
  Transmission Date: 20080405
  Serious: Yes (Other)
  Sender: FDA-Public Use
  Company Number: US-BAYER-200715417NA

PATIENT
  Age: 23 Year
  Sex: Female

DRUGS (1)
  1. MIRENA [Suspect]
     Indication: CONTRACEPTION
     Dosage: TOTAL DAILY DOSE: 20 ?G
     Route: 015
     Dates: start: 20071001

REACTIONS (3)
  - ABDOMINAL PAIN [None]
  - NEPHROLITHIASIS [None]
  - URETERAL DISORDER [None]
